FAERS Safety Report 18004901 (Version 3)
Quarter: 2020Q4

REPORT INFORMATION
  Report Type: Spontaneous
  Country: US (occurrence: US)
  Receive Date: 20200710
  Receipt Date: 20201213
  Transmission Date: 20210113
  Serious: No
  Sender: FDA-Public Use
  Company Number: US-LUPIN PHARMACEUTICALS INC.-2020-02710

PATIENT
  Sex: Female

DRUGS (1)
  1. PHENELZINE TABLET [Suspect]
     Active Substance: PHENELZINE
     Indication: DEPRESSION
     Dosage: UNK
     Route: 065
     Dates: start: 202004

REACTIONS (7)
  - Decreased interest [Unknown]
  - Apathy [Unknown]
  - Product substitution issue [Unknown]
  - Asthenia [Unknown]
  - Depressed mood [Unknown]
  - Fatigue [Unknown]
  - Drug ineffective [Unknown]

NARRATIVE: CASE EVENT DATE: 20200430
